FAERS Safety Report 4704127-6 (Version None)
Quarter: 2005Q2

REPORT INFORMATION
  Report Type: 
  Country: None (occurrence: None)
  Receive Date: 20050629
  Receipt Date: 20020624
  Transmission Date: 20051028
  Serious: No
  Sender: FDA-Public Use
  Company Number: 3840

PATIENT
  Age: 65 Year
  Sex: Male

DRUGS (3)
  1. ACYCLOVIR [Suspect]
     Indication: HERPES SIMPLEX
     Dosage: 2.4 G IV
     Route: 042
     Dates: start: 20020411, end: 20020425
  2. PHENYTOIN SODIUM [Suspect]
     Indication: CONVULSION
     Dosage: 300 MG
     Dates: start: 20020414, end: 20020420
  3. OMEPRAZOLE [Concomitant]

REACTIONS (1)
  - LIVER FUNCTION TEST ABNORMAL [None]
